FAERS Safety Report 24656813 (Version 1)
Quarter: 2024Q4

REPORT INFORMATION
  Report Type: Spontaneous
  Country: US (occurrence: US)
  Receive Date: 20241125
  Receipt Date: 20241125
  Transmission Date: 20250115
  Serious: No
  Sender: Kenvue
  Company Number: US-KENVUE-20241103531

PATIENT
  Sex: Female

DRUGS (1)
  1. ZYRTEC [Suspect]
     Active Substance: CETIRIZINE HYDROCHLORIDE
     Indication: COVID-19
     Dosage: 2 DOSAGE FORM, ONCE A DAY
     Route: 065

REACTIONS (3)
  - Adverse event [Unknown]
  - Prescribed overdose [Unknown]
  - Off label use [Unknown]
